FAERS Safety Report 6005755-0 (Version None)
Quarter: 2008Q4

REPORT INFORMATION
  Report Type: 
  Country: None (occurrence: None)
  Receive Date: 20081215
  Receipt Date: 20081201
  Transmission Date: 20090506
  Serious: Yes (Life-Threatening, Hospitalization)
  Sender: FDA-Public Use
  Company Number: 2008S1021453

PATIENT
  Age: 12 Year
  Sex: Female

DRUGS (4)
  1. CLARITHROMYCIN [Suspect]
     Indication: MYCOPLASMA INFECTION
     Dosage: 250 MG; TWICE A DAY; ORAL
     Route: 048
     Dates: start: 20081025, end: 20081027
  2. CHLORAL HYDRATE (CHLORAL HYDRATE) [Suspect]
     Indication: SEDATION
     Dosage: 15 MG/KG; AS NEEDED ORAL
     Route: 048
     Dates: start: 20081027, end: 20081027
  3. CEFALEXIN (CEFALEXIN) (CON.) [Concomitant]
  4. CEFUROXIME (CEFUROXIME) (CON.) [Concomitant]

REACTIONS (2)
  - COAGULOPATHY [None]
  - LIVER FUNCTION TEST ABNORMAL [None]
